FAERS Safety Report 16276769 (Version 1)
Quarter: 2019Q2

REPORT INFORMATION
  Report Type: Report from Study
  Country: US (occurrence: US)
  Receive Date: 20190506
  Receipt Date: 20190506
  Transmission Date: 20190711
  Serious: Yes (Hospitalization)
  Sender: FDA-Public Use
  Company Number: US-B.I. PHARMACEUTICALS,INC./RIDGEFIELD-2017-BI-061268

PATIENT
  Sex: Male

DRUGS (2)
  1. OFEV [Suspect]
     Active Substance: NINTEDANIB
     Route: 048
  2. OFEV [Suspect]
     Active Substance: NINTEDANIB
     Indication: IDIOPATHIC PULMONARY FIBROSIS
     Route: 048
     Dates: start: 20170927

REACTIONS (7)
  - Dyspnoea [Unknown]
  - Pneumothorax [Unknown]
  - Gastrointestinal haemorrhage [Unknown]
  - Productive cough [Unknown]
  - Cough [Recovering/Resolving]
  - Pneumonia [Recovered/Resolved]
  - Pneumonia [Unknown]
